FAERS Safety Report 12226770 (Version 5)
Quarter: 2020Q3

REPORT INFORMATION
  Report Type: Report from Study
  Country: US (occurrence: US)
  Receive Date: 20160331
  Receipt Date: 20170328
  Transmission Date: 20201105
  Serious: Yes (Death)
  Sender: FDA-Public Use
  Company Number: US-JNJFOC-20160327411

PATIENT
  Age: 73 Year
  Sex: Female
  Weight: 41 kg

DRUGS (14)
  1. IBRUTINIB [Suspect]
     Active Substance: IBRUTINIB
     Indication: LYMPHOMA
     Route: 048
     Dates: start: 20160223, end: 20160316
  2. HYDROCODONE/ACETAMINOPHEN [Concomitant]
     Active Substance: ACETAMINOPHEN\HYDROCODONE
     Indication: PAIN
     Dosage: 5 MG/325 MG TABLET, EVERY 6 HRS X PRN
     Route: 048
  3. VENLAFAXINE [Concomitant]
     Active Substance: VENLAFAXINE HYDROCHLORIDE
     Route: 048
     Dates: start: 20151026
  4. MORPHINE [Concomitant]
     Active Substance: MORPHINE
     Dosage: 15 MG, 2 TABLETS EVERY 4?6 HOURS PRN
     Route: 048
     Dates: start: 20160222
  5. IBRUTINIB [Suspect]
     Active Substance: IBRUTINIB
     Route: 048
  6. ZYLOPRIM [Concomitant]
     Active Substance: ALLOPURINOL
     Dosage: 300 MG, TABLET, QD
     Route: 048
     Dates: start: 20150807
  7. MEDI4736 [Suspect]
     Active Substance: DURVALUMAB
     Indication: LYMPHOMA
     Route: 042
     Dates: start: 20160301, end: 20160316
  8. POTASSIUM W/SODIUM [Concomitant]
     Dosage: 250 MG?280 MG ?160 MG, POWDER FOR RECONSTITUTION, 1 PACKET X TID
     Route: 048
     Dates: start: 20160308
  9. ZOFRAN [Concomitant]
     Active Substance: ONDANSETRON HYDROCHLORIDE
     Indication: NAUSEA
     Dosage: 4 MG, TABLET, EVERY 4 HRS X PRN
     Dates: start: 20160124
  10. HYDROCORTISONE. [Concomitant]
     Active Substance: HYDROCORTISONE
     Dosage: 1 %, BID, CREAM
     Route: 061
     Dates: start: 20160301
  11. MEGACE [Concomitant]
     Active Substance: MEGESTROL ACETATE
     Dosage: 400 MG/10 ML SUSPENSION, 10 ML X BID
     Route: 048
     Dates: start: 20160222
  12. DIPHENHYDRAMINE. [Concomitant]
     Active Substance: DIPHENHYDRAMINE
     Indication: HYPERSENSITIVITY
     Route: 048
  13. ZOFRAN [Concomitant]
     Active Substance: ONDANSETRON HYDROCHLORIDE
     Indication: VOMITING
     Dosage: 4 MG, TABLET, EVERY 4 HRS X PRN
     Dates: start: 20160124
  14. ATIVAN [Concomitant]
     Active Substance: LORAZEPAM
     Dosage: 1 MG, TABLET, QHS
     Route: 048
     Dates: start: 20160226

REACTIONS (1)
  - Tumour rupture [Fatal]

NARRATIVE: CASE EVENT DATE: 20160323
